FAERS Safety Report 5020807-X (Version None)
Quarter: 2006Q2

REPORT INFORMATION
  Report Type: 
  Country: None (occurrence: None)
  Receive Date: 20060608
  Receipt Date: 20060530
  Transmission Date: 20061013
  Serious: Yes (Other)
  Sender: FDA-Public Use
  Company Number: BR-JNJFOC-20060600832

PATIENT
  Age: 12 Year
  Sex: Female
  Weight: 78 kg

DRUGS (2)
  1. RISPERDAL [Suspect]
     Indication: TIC
     Route: 048
  2. HALDOL [Suspect]
     Indication: TIC
     Dosage: 2 PILLS (UNSPECIFIED DOSE) DAILY
     Route: 048

REACTIONS (4)
  - DEPRESSION [None]
  - MENSTRUATION IRREGULAR [None]
  - SINUSITIS [None]
  - WEIGHT INCREASED [None]
